FAERS Safety Report 23988124 (Version 2)
Quarter: 2024Q3

REPORT INFORMATION
  Report Type: Spontaneous
  Country: JP (occurrence: JP)
  Receive Date: 20240619
  Receipt Date: 20240713
  Transmission Date: 20241016
  Serious: No
  Sender: Waylis
  Company Number: JP-WT-2024-057752

PATIENT
  Sex: Male

DRUGS (1)
  1. DUTASTERIDE [Suspect]
     Active Substance: DUTASTERIDE
     Indication: Benign prostatic hyperplasia
     Dosage: 0.5 MG
     Route: 065

REACTIONS (2)
  - Blood luteinising hormone increased [Unknown]
  - Blood follicle stimulating hormone increased [Unknown]
